FAERS Safety Report 17509591 (Version 1)
Quarter: 2020Q1

REPORT INFORMATION
  Report Type: Spontaneous
  Country: IT (occurrence: IT)
  Receive Date: 20200306
  Receipt Date: 20200306
  Transmission Date: 20200409
  Serious: Yes (Hospitalization)
  Sender: FDA-Public Use
  Company Number: IT-MYLANLABS-2020M1024458

PATIENT
  Age: 71 Year
  Sex: Male

DRUGS (8)
  1. TRIMETHOPRIM SULFAMETHOXAZOLE [Concomitant]
     Active Substance: SULFAMETHOXAZOLE\TRIMETHOPRIM
     Indication: SOFT TISSUE INFECTION
  2. PREDNISONE. [Suspect]
     Active Substance: PREDNISONE
     Indication: CHRONIC LYMPHOCYTIC LEUKAEMIA
     Dosage: 25 MILLIGRAM, QD
     Route: 065
  3. TRIMETHOPRIM SULFAMETHOXAZOLE [Concomitant]
     Active Substance: SULFAMETHOXAZOLE\TRIMETHOPRIM
     Indication: PULMONARY NOCARDIOSIS
  4. TRIMETHOPRIM SULFAMETHOXAZOLE [Concomitant]
     Active Substance: SULFAMETHOXAZOLE\TRIMETHOPRIM
     Indication: CUTANEOUS NOCARDIOSIS
  5. ACYCLOVIR                          /00587301/ [Concomitant]
     Active Substance: ACYCLOVIR
     Indication: ANTIBIOTIC THERAPY
     Dosage: 400 MILLIGRAM, BID
     Route: 065
  6. TRIMETHOPRIM SULFAMETHOXAZOLE [Concomitant]
     Active Substance: SULFAMETHOXAZOLE\TRIMETHOPRIM
     Indication: NOCARDIOSIS
     Dosage: 15 MILLIGRAM/KILOGRAM, THREE TIMES DAILY FOR DISSEMINATED NOCARDIOSIS
     Route: 065
  7. TRIMETHOPRIM SULFAMETHOXAZOLE [Concomitant]
     Active Substance: SULFAMETHOXAZOLE\TRIMETHOPRIM
     Indication: BRAIN ABSCESS
  8. TRIMETHOPRIM SULFAMETHOXAZOLE [Concomitant]
     Active Substance: SULFAMETHOXAZOLE\TRIMETHOPRIM
     Indication: ANTIBIOTIC PROPHYLAXIS
     Dosage: 160 MILLIGRAM, BIWEEKLY
     Route: 065

REACTIONS (6)
  - Nocardiosis [Recovered/Resolved]
  - Soft tissue infection [Recovered/Resolved]
  - Pulmonary nocardiosis [Recovering/Resolving]
  - Haematoma muscle [Recovering/Resolving]
  - Brain abscess [Recovered/Resolved]
  - Cutaneous nocardiosis [Recovered/Resolved]
